FAERS Safety Report 8522787-9 (Version None)
Quarter: 2012Q3

REPORT INFORMATION
  Report Type: 
  Country: None (occurrence: None)
  Receive Date: 20120719
  Receipt Date: 20120713
  Transmission Date: 20120928
  Serious: No
  Sender: FDA-Public Use
  Company Number: US-BAYER-2012-070609

PATIENT
  Sex: Male

DRUGS (1)
  1. MIRENA [Suspect]
     Route: 062

REACTIONS (3)
  - PENIS INJURY [None]
  - PENILE PAIN [None]
  - SEXUAL DYSFUNCTION [None]
